FAERS Safety Report 20526329 (Version 2)
Quarter: 2022Q1

REPORT INFORMATION
  Report Type: Report from Study
  Country: HU (occurrence: HU)
  Receive Date: 20220228
  Receipt Date: 20220308
  Transmission Date: 20220423
  Serious: Yes (Death, Life-Threatening, Hospitalization, Other)
  Sender: FDA-Public Use
  Company Number: HU-NOVARTISPH-NVSC2022HU043535

PATIENT
  Sex: Male

DRUGS (15)
  1. ENTRESTO [Suspect]
     Active Substance: SACUBITRIL\VALSARTAN
     Indication: Product used for unknown indication
     Dosage: UNK
     Route: 065
     Dates: start: 20210804
  2. TEGRETOL [Suspect]
     Active Substance: CARBAMAZEPINE
     Indication: Product used for unknown indication
     Dosage: UNK
     Route: 065
     Dates: start: 2016
  3. TEGRETOL [Suspect]
     Active Substance: CARBAMAZEPINE
     Dosage: UNK
     Route: 065
     Dates: start: 20220210
  4. ALLOPURINOL [Concomitant]
     Active Substance: ALLOPURINOL
     Indication: Blood uric acid increased
     Dosage: UNK
     Route: 065
     Dates: start: 2009
  5. ALLOPURINOL [Concomitant]
     Active Substance: ALLOPURINOL
     Dosage: UNK
     Route: 065
     Dates: start: 2017
  6. MIDAZOLAM [Concomitant]
     Active Substance: MIDAZOLAM
     Indication: Product used for unknown indication
     Dosage: UNK
     Route: 065
     Dates: start: 2017
  7. MIDAZOLAM [Concomitant]
     Active Substance: MIDAZOLAM
     Dosage: UNK
     Route: 065
     Dates: start: 20220210
  8. EPLERENONE [Concomitant]
     Active Substance: EPLERENONE
     Indication: Product used for unknown indication
     Dosage: UNK
     Route: 065
  9. FUROSEMIDE [Concomitant]
     Active Substance: FUROSEMIDE
     Indication: Product used for unknown indication
     Dosage: UNK
     Route: 065
  10. DIGOXIN [Concomitant]
     Active Substance: DIGOXIN
     Indication: Product used for unknown indication
     Dosage: UNK
     Route: 065
  11. PIRACETAM [Concomitant]
     Active Substance: PIRACETAM
     Indication: Product used for unknown indication
     Dosage: UNK
     Route: 065
  12. MODUXIN [Concomitant]
     Indication: Product used for unknown indication
     Dosage: UNK
     Route: 065
  13. PRADAXA [Concomitant]
     Active Substance: DABIGATRAN ETEXILATE MESYLATE
     Indication: Product used for unknown indication
     Dosage: UNK
     Route: 065
  14. METOPROLOL SUCCINATE [Concomitant]
     Active Substance: METOPROLOL SUCCINATE
     Indication: Product used for unknown indication
     Dosage: UNK
     Route: 065
  15. UNSPECIFIED INGREDIENT [Concomitant]
     Active Substance: UNSPECIFIED INGREDIENT
     Indication: Product used for unknown indication
     Dosage: UNK
     Route: 065

REACTIONS (50)
  - Circulatory collapse [Fatal]
  - Ventricular arrhythmia [Fatal]
  - Respiratory arrest [Fatal]
  - Cardiac disorder [Fatal]
  - Brain injury [Fatal]
  - Coma [Unknown]
  - Aortic stenosis [Unknown]
  - Coronary artery occlusion [Unknown]
  - Post procedural swelling [Unknown]
  - Post procedural haematoma [Unknown]
  - Respiration abnormal [Unknown]
  - Acute respiratory failure [Unknown]
  - Cardiac arrest [Unknown]
  - Dyspnoea [Recovered/Resolved]
  - Loss of consciousness [Unknown]
  - Ventricular fibrillation [Unknown]
  - Ventricular flutter [Unknown]
  - Pupil fixed [Unknown]
  - Seizure [Unknown]
  - Congestive cardiomyopathy [Unknown]
  - Cardiac failure congestive [Unknown]
  - Left ventricular failure [Unknown]
  - Bradycardia [Unknown]
  - Lactic acidosis [Unknown]
  - Ischaemic cardiomyopathy [Unknown]
  - Myocardial ischaemia [Unknown]
  - Mitral valve incompetence [Unknown]
  - Hyperthyroidism [Unknown]
  - Cardiac failure [Unknown]
  - Atrial fibrillation [Recovered/Resolved]
  - Thyroid mass [Unknown]
  - Weight decreased [Unknown]
  - Atrial flutter [Recovered/Resolved]
  - Inguinal hernia [Unknown]
  - Condition aggravated [Unknown]
  - White blood cell count increased [Unknown]
  - Neutrophil count increased [Unknown]
  - Lymphocyte count increased [Unknown]
  - Haematocrit increased [Unknown]
  - Mean cell volume increased [Unknown]
  - Blood creatine phosphokinase increased [Unknown]
  - Blood creatinine increased [Unknown]
  - Aspartate aminotransferase increased [Unknown]
  - Alanine aminotransferase increased [Unknown]
  - Blood glucose increased [Unknown]
  - Blood lactate dehydrogenase increased [Unknown]
  - Blood creatine phosphokinase MB increased [Unknown]
  - Gamma-glutamyltransferase increased [Unknown]
  - Oedema [Recovered/Resolved]
  - Blood pressure decreased [Unknown]

NARRATIVE: CASE EVENT DATE: 20160101
